FAERS Safety Report 8495011-3 (Version None)
Quarter: 2012Q3

REPORT INFORMATION
  Report Type: 
  Country: None (occurrence: None)
  Receive Date: 20120709
  Receipt Date: 20120628
  Transmission Date: 20120928
  Serious: Yes (Hospitalization)
  Sender: FDA-Public Use
  Company Number: NL-JNJFOC-20120700547

PATIENT
  Sex: Female
  Weight: 42 kg

DRUGS (6)
  1. TACROLIMUS [Concomitant]
  2. HUMIRA [Concomitant]
     Dates: start: 20110223
  3. AZATHIOPRINE [Concomitant]
  4. PREDNISONE [Concomitant]
  5. ANTIBIOTIC (NOT SPECIFIED) [Concomitant]
  6. REMICADE [Suspect]
     Indication: CROHN'S DISEASE
     Route: 042
     Dates: start: 20061021

REACTIONS (1)
  - CROHN'S DISEASE [None]
